FAERS Safety Report 19928369 (Version 1)
Quarter: 2021Q4

REPORT INFORMATION
  Report Type: Report from Study
  Country: AU (occurrence: AU)
  Receive Date: 20211007
  Receipt Date: 20211007
  Transmission Date: 20220303
  Serious: Yes (Other)
  Sender: FDA-Public Use
  Company Number: AU-NOVARTISPH-NVSC2021AU227089

PATIENT
  Age: 71 Year
  Sex: Male

DRUGS (1)
  1. ENTRESTO [Suspect]
     Active Substance: SACUBITRIL\VALSARTAN
     Indication: Product used for unknown indication
     Dosage: UNK (12 MONTHS AGO)
     Route: 065

REACTIONS (13)
  - Loss of consciousness [Unknown]
  - Heart valve incompetence [Unknown]
  - Cardiomegaly [Unknown]
  - Cardiac valve disease [Unknown]
  - Head injury [Unknown]
  - Anxiety [None]
  - Blood pressure fluctuation [Unknown]
  - Dyspepsia [Unknown]
  - Joint dislocation [Unknown]
  - Blood pressure increased [Unknown]
  - Drug ineffective [Unknown]
  - Off label use [Unknown]
  - Product dose omission in error [Unknown]
